FAERS Safety Report 6824942-2 (Version None)
Quarter: 2010Q3

REPORT INFORMATION
  Report Type: 
  Country: None (occurrence: None)
  Receive Date: 20100708
  Receipt Date: 20061122
  Transmission Date: 20110219
  Serious: No
  Sender: FDA-Public Use
  Company Number: US-PFIZER INC-2006147662

PATIENT
  Sex: Male
  Weight: 83.91 kg

DRUGS (3)
  1. CHANTIX [Suspect]
     Indication: SMOKING CESSATION THERAPY
     Dates: start: 20060101
  2. PRAVACHOL [Concomitant]
  3. ASPIRIN [Concomitant]

REACTIONS (1)
  - SLEEP DISORDER [None]
